FAERS Safety Report 10698067 (Version 1)
Quarter: 2015Q1

REPORT INFORMATION
  Report Type: Spontaneous
  Country: CA (occurrence: CA)
  Receive Date: 20150108
  Receipt Date: 20150108
  Transmission Date: 20150721
  Serious: Yes (Hospitalization)
  Sender: FDA-Public Use
  Company Number: CA-ASTELLAS-2015US000020

PATIENT
  Age: 56 Year
  Sex: Male

DRUGS (1)
  1. ADVAGRAF [Suspect]
     Active Substance: TACROLIMUS
     Indication: RENAL TRANSPLANT
     Dosage: UNK UNK, UNKNOWN FREQ.
     Route: 065

REACTIONS (9)
  - Renal impairment [Unknown]
  - Viraemia [Unknown]
  - Hydronephrosis [Unknown]
  - Muscle haemorrhage [Unknown]
  - Malnutrition [Unknown]
  - Pneumocystis jirovecii pneumonia [Recovered/Resolved]
  - Asthenia [Unknown]
  - Encephalopathy [Unknown]
  - Oesophagitis [Unknown]

NARRATIVE: CASE EVENT DATE: 201408
